FAERS Safety Report 8315419-6 (Version None)
Quarter: 2012Q2

REPORT INFORMATION
  Report Type: 
  Country: None (occurrence: None)
  Receive Date: 20120426
  Receipt Date: 20120417
  Transmission Date: 20120825
  Serious: Yes (Hospitalization)
  Sender: FDA-Public Use
  Company Number: US-ACTELION-A-NJ2012-63216

PATIENT

DRUGS (14)
  1. SILDENAFIL [Concomitant]
  2. AMLODIPINE [Concomitant]
  3. SPIRONOLACTONE [Concomitant]
  4. AMBIEN [Concomitant]
  5. CARDIAZEM [Concomitant]
  6. EPOPROSTENOL SODIUM [Suspect]
     Indication: PULMONARY ARTERIAL HYPERTENSION
     Dosage: 75.5 NG/KG, PER MIN
     Route: 041
     Dates: start: 20101005
  7. TRACLEER [Suspect]
     Indication: PULMONARY ARTERIAL HYPERTENSION
     Dosage: 125 MG, BID
     Route: 048
  8. TRACLEER [Suspect]
     Dosage: UNK
     Route: 048
     Dates: start: 20030519
  9. LEVOTHYROXINE SODIUM [Concomitant]
  10. LYRICA [Concomitant]
  11. MONTELUKAST [Concomitant]
  12. METOCLOPRAMIDE [Concomitant]
  13. LORAZEPAM [Concomitant]
  14. PANTOPRAZOLE [Concomitant]

REACTIONS (9)
  - TRANSFUSION [None]
  - DYSPNOEA [None]
  - OEDEMA [None]
  - GASTROINTESTINAL ARTERIOVENOUS MALFORMATION [None]
  - GASTRIC POLYPS [None]
  - THROMBOPHLEBITIS SUPERFICIAL [None]
  - GASTROINTESTINAL HAEMORRHAGE [None]
  - PALPITATIONS [None]
  - WEIGHT INCREASED [None]
